FAERS Safety Report 20920667 (Version 1)
Quarter: 2022Q2

REPORT INFORMATION
  Report Type: Spontaneous
  Country: US (occurrence: None)
  Receive Date: 20220606
  Receipt Date: 20220606
  Transmission Date: 20220721
  Serious: Yes (Hospitalization, Disabling)
  Sender: FDA-Public Use
  Company Number: None

PATIENT
  Age: 0 Year
  Sex: Male

DRUGS (2)
  1. CREON [Suspect]
     Active Substance: PANCRELIPASE AMYLASE\PANCRELIPASE LIPASE\PANCRELIPASE PROTEASE
     Indication: Cystic fibrosis
     Dosage: OTHER QUANTITY : 4 CS;?OTHER FREQUENCY : EACH FEEDING ;?
     Route: 048
     Dates: start: 20220415
  2. PULMOZYME [Suspect]
     Active Substance: DORNASE ALFA
     Indication: Cystic fibrosis
     Dosage: OTHER QUANTITY : 1 VIAL;?FREQUENCY : DAILY;?
     Route: 055
     Dates: start: 20220415

REACTIONS (2)
  - Weight decreased [None]
  - Malnutrition [None]

NARRATIVE: CASE EVENT DATE: 20220601
